FAERS Safety Report 9109780 (Version 1)
Quarter: 2013Q1

REPORT INFORMATION
  Report Type: Spontaneous
  Country: BE (occurrence: BE)
  Receive Date: 20130222
  Receipt Date: 20130222
  Transmission Date: 20140127
  Serious: Yes (Hospitalization)
  Sender: FDA-Public Use
  Company Number: BE-AMGEN-BELSP2013003641

PATIENT
  Sex: Female

DRUGS (4)
  1. NPLATE [Suspect]
     Indication: PRODUCT USED FOR UNKNOWN INDICATION
     Dosage: 1.6 ML, UNK
  2. GLUCOPHAGE [Concomitant]
  3. SIMVASTATINE [Concomitant]
  4. DIAMICRON [Concomitant]

REACTIONS (4)
  - Amnesia [Unknown]
  - Tremor [Unknown]
  - Aptyalism [Unknown]
  - Goitre [Unknown]
